FAERS Safety Report 6719701-5 (Version None)
Quarter: 2010Q2

REPORT INFORMATION
  Report Type: 
  Country: None (occurrence: None)
  Receive Date: 20100510
  Receipt Date: 20100510
  Transmission Date: 20101027
  Serious: Yes (Hospitalization)
  Sender: FDA-Public Use
  Company Number: None

PATIENT
  Age: 73 Year
  Sex: Male
  Weight: 57.1532 kg

DRUGS (12)
  1. ERLOTINIB HYDROCHLORIDE [Suspect]
     Indication: NON-SMALL CELL LUNG CANCER
     Dosage: 150MG DAILY
     Dates: start: 20100326, end: 20100507
  2. BEVACIZIMAB [Suspect]
     Indication: NON-SMALL CELL LUNG CANCER
     Dosage: 83 MG
     Dates: start: 20100326, end: 20100416
  3. MULTI-VITAMIN [Concomitant]
  4. ADVAIR DISKUS 100/50 [Concomitant]
  5. FOLIC ACID [Concomitant]
  6. MOBIC [Concomitant]
  7. OXYCONTIN [Concomitant]
  8. LEVAQUIN [Concomitant]
  9. MOBIC [Concomitant]
  10. OXYCONTIN [Concomitant]
  11. OXYCODONE HCL [Concomitant]
  12. ZOFRAN [Concomitant]

REACTIONS (2)
  - INTERSTITIAL LUNG DISEASE [None]
  - OXYGEN SATURATION DECREASED [None]
